FAERS Safety Report 19073861 (Version 5)
Quarter: 2021Q3

REPORT INFORMATION
  Report Type: Report from Study
  Country: None (occurrence: US)
  Receive Date: 20210330
  Receipt Date: 20210702
  Transmission Date: 20211014
  Serious: Yes (Other)
  Sender: FDA-Public Use
  Company Number: US-ABBVIE-21K-163-3748219-00

PATIENT
  Sex: Male
  Weight: 104.42 kg

DRUGS (10)
  1. RINVOQ [Concomitant]
     Active Substance: UPADACITINIB
     Indication: RHEUMATOID ARTHRITIS
  2. COVID?19 VACCINE [Concomitant]
     Dosage: MODERNA
     Route: 030
     Dates: start: 20210314, end: 20210314
  3. ABATACEPT [Concomitant]
     Active Substance: ABATACEPT
     Indication: PRODUCT USED FOR UNKNOWN INDICATION
  4. KEVZARA [Suspect]
     Active Substance: SARILUMAB
     Indication: RHEUMATOID ARTHRITIS
     Route: 058
     Dates: start: 20180615
  5. KEVZARA [Suspect]
     Active Substance: SARILUMAB
     Route: 058
     Dates: start: 20200314, end: 20200702
  6. HUMIRA [Suspect]
     Active Substance: ADALIMUMAB
     Indication: RHEUMATOID ARTHRITIS
     Route: 058
     Dates: start: 20171115, end: 20180615
  7. ORENCIA [Suspect]
     Active Substance: ABATACEPT
     Indication: RHEUMATOID ARTHRITIS
     Route: 065
  8. COVID?19 VACCINE [Concomitant]
     Indication: COVID-19 IMMUNISATION
     Dosage: MODERNA
     Route: 030
     Dates: start: 20210214, end: 20210214
  9. KEVZARA [Suspect]
     Active Substance: SARILUMAB
     Route: 058
     Dates: start: 2019
  10. PLAQUENIL [Concomitant]
     Active Substance: HYDROXYCHLOROQUINE SULFATE
     Indication: RHEUMATOID ARTHRITIS

REACTIONS (13)
  - White blood cell count abnormal [Recovered/Resolved]
  - Rheumatoid arthritis [Recovering/Resolving]
  - Drug ineffective [Unknown]
  - Drug ineffective [Recovered/Resolved]
  - Blood count abnormal [Recovering/Resolving]
  - White blood cell count decreased [Recovered/Resolved]
  - Abnormal weight gain [Not Recovered/Not Resolved]
  - Drug ineffective [Unknown]
  - Product use issue [Recovered/Resolved]
  - Immunodeficiency [Recovered/Resolved]
  - White blood cell count abnormal [Recovered/Resolved]
  - Nasopharyngitis [Recovering/Resolving]
  - Weight increased [Recovered/Resolved]

NARRATIVE: CASE EVENT DATE: 2017
